FAERS Safety Report 6476815-5 (Version None)
Quarter: 2009Q4

REPORT INFORMATION
  Report Type: 
  Country: None (occurrence: None)
  Receive Date: 20091207
  Receipt Date: 20091126
  Transmission Date: 20100525
  Serious: Yes (Death)
  Sender: FDA-Public Use
  Company Number: JP-ROCHE-672335

PATIENT
  Age: 80 Year
  Sex: Male

DRUGS (1)
  1. TAMIFLU [Suspect]
     Indication: INFLUENZA
     Dosage: STOP DATE: NOV 2009
     Route: 048
     Dates: start: 20091124

REACTIONS (1)
  - CARDIAC DISORDER [None]
